FAERS Safety Report 10390938 (Version 1)
Quarter: 2014Q3

REPORT INFORMATION
  Report Type: Spontaneous
  Country: RO (occurrence: RO)
  Receive Date: 20140818
  Receipt Date: 20140818
  Transmission Date: 20150326
  Serious: Yes (Death, Life-Threatening, Other)
  Sender: FDA-Public Use
  Company Number: RO-ROXANE LABORATORIES, INC.-2014-RO-01235RO

PATIENT
  Age: 24 Year
  Sex: Male

DRUGS (2)
  1. ZOPICLONUM [Suspect]
     Active Substance: ZOPICLONE
     Indication: PRODUCT USED FOR UNKNOWN INDICATION
     Route: 065
  2. METHADONE [Suspect]
     Active Substance: METHADONE HYDROCHLORIDE
     Indication: PRODUCT USED FOR UNKNOWN INDICATION
     Route: 065

REACTIONS (4)
  - Cardiopulmonary failure [Fatal]
  - Acute pulmonary oedema [Unknown]
  - Toxicity to various agents [Unknown]
  - Pulmonary hypertension [Unknown]
